FAERS Safety Report 19149195 (Version 1)
Quarter: 2021Q2

REPORT INFORMATION
  Report Type: Spontaneous
  Country: GB (occurrence: GB)
  Receive Date: 20210417
  Receipt Date: 20210417
  Transmission Date: 20210717
  Serious: Yes (Life-Threatening, Hospitalization, Other)
  Sender: FDA-Public Use
  Company Number: GB-AUROBINDO-AUR-APL-2021-015235

PATIENT
  Age: 15 Year
  Sex: Female
  Weight: 78 kg

DRUGS (2)
  1. FERROUS GLUCONATE [Concomitant]
     Active Substance: FERROUS GLUCONATE
     Indication: ILL-DEFINED DISORDER
     Dosage: UNK
     Route: 065
  2. TOPIRAMATE. [Suspect]
     Active Substance: TOPIRAMATE
     Indication: ILL-DEFINED DISORDER
     Dosage: UNK (50 MG DAILY ..SIDE EFFECT HAPPENED WHEN TRYING TO INCREASE TO 75MG DAILY)
     Route: 048
     Dates: start: 20191114

REACTIONS (1)
  - Adverse drug reaction [Recovering/Resolving]
